FAERS Safety Report 25176400 (Version 1)
Quarter: 2025Q2

REPORT INFORMATION
  Report Type: Spontaneous
  Country: US (occurrence: US)
  Receive Date: 20250409
  Receipt Date: 20250409
  Transmission Date: 20250717
  Serious: Yes (Hospitalization)
  Sender: ABBVIE
  Company Number: US-ABBVIE-6210751

PATIENT

DRUGS (3)
  1. SKYRIZI [Suspect]
     Active Substance: RISANKIZUMAB-RZAA
     Indication: Product used for unknown indication
     Route: 042
  2. SKYRIZI [Suspect]
     Active Substance: RISANKIZUMAB-RZAA
     Indication: Product used for unknown indication
     Route: 042
     Dates: start: 202503, end: 202503
  3. PREDNISONE [Suspect]
     Active Substance: PREDNISONE
     Indication: Product used for unknown indication
     Route: 065

REACTIONS (12)
  - Obstruction [Unknown]
  - Pain [Unknown]
  - Syncope [Unknown]
  - Dehydration [Unknown]
  - Hypokalaemia [Unknown]
  - Hypoglycaemia [Unknown]
  - Migraine [Unknown]
  - Postural orthostatic tachycardia syndrome [Unknown]
  - Eye contusion [Unknown]
  - Contusion [Unknown]
  - Faecal calprotectin increased [Recovered/Resolved]
  - Fatigue [Unknown]

NARRATIVE: CASE EVENT DATE: 20250101
